FAERS Safety Report 22005935 (Version 1)
Quarter: 2023Q1

REPORT INFORMATION
  Report Type: Spontaneous
  Country: US (occurrence: US)
  Receive Date: 20230217
  Receipt Date: 20230217
  Transmission Date: 20230418
  Serious: No
  Sender: FDA-Public Use
  Company Number: US-ADC THERAPEUTICS-ADC-2022-000287

PATIENT
  Age: 63 Year
  Weight: 170 kg

DRUGS (1)
  1. ZYNLONTA [Suspect]
     Active Substance: LONCASTUXIMAB TESIRINE-LPYL
     Indication: Diffuse large B-cell lymphoma
     Dosage: 11.05MG (0.5MG/KG), Q3WK
     Route: 042
     Dates: start: 20221101

REACTIONS (1)
  - Intercepted medication error [Recovered/Resolved]

NARRATIVE: CASE EVENT DATE: 20221101
